FAERS Safety Report 8735914 (Version 3)
Quarter: 2012Q4

REPORT INFORMATION
  Report Type: 
  Country: US (occurrence: US)
  Receive Date: 20120822
  Receipt Date: 20121018
  Transmission Date: 20130627
  Serious: Yes (Hospitalization, Other)
  Sender: FDA-Public Use
  Company Number: US-PFIZER INC-2012201081

PATIENT
  Age: 84 Year
  Sex: Male
  Weight: 81.18 kg

DRUGS (4)
  1. LYRICA [Suspect]
     Indication: NEUROPATHY PERIPHERAL
     Dosage: 75 mg, 2x/day
     Dates: start: 2007
  2. LEVOTHYROXINE [Concomitant]
     Dosage: 25 mg, daily
  3. FUROSEMIDE [Concomitant]
     Indication: URINARY TRACT DISORDER
     Dosage: 20 mg, daily
  4. TAMSULOSIN [Concomitant]
     Indication: URINARY TRACT DISORDER
     Dosage: 4 mg, daily

REACTIONS (1)
  - Neoplasm malignant [Unknown]
